FAERS Safety Report 6593395-4 (Version None)
Quarter: 2010Q1

REPORT INFORMATION
  Report Type: 
  Country: None (occurrence: None)
  Receive Date: 20100222
  Receipt Date: 20090324
  Transmission Date: 20100710
  Serious: No
  Sender: FDA-Public Use
  Company Number: US-BRISTOL-MYERS SQUIBB COMPANY-14559934

PATIENT
  Sex: Female

DRUGS (3)
  1. ORENCIA [Suspect]
     Indication: ANKYLOSING SPONDYLITIS
     Route: 042
     Dates: start: 20071201
  2. MOBIC [Concomitant]
  3. METHOTREXATE [Concomitant]
     Dosage: INJECTIONS

REACTIONS (1)
  - DRUG EFFECT DECREASED [None]
